FAERS Safety Report 5317925-5 (Version None)
Quarter: 2007Q2

REPORT INFORMATION
  Report Type: 
  Country: None (occurrence: None)
  Receive Date: 20070507
  Receipt Date: 20070502
  Transmission Date: 20071010
  Serious: Yes (Other)
  Sender: FDA-Public Use
  Company Number: D0053131A

PATIENT
  Sex: Male

DRUGS (2)
  1. ARIXTRA [Suspect]
     Dosage: 7.5MG PER DAY
     Route: 058
     Dates: start: 20050301
  2. PANTOZOL [Concomitant]
     Indication: GASTRITIS
     Route: 065

REACTIONS (2)
  - GYNAECOMASTIA [None]
  - PROLACTINOMA [None]
